FAERS Safety Report 20490459 (Version 4)
Quarter: 2022Q4

REPORT INFORMATION
  Report Type: Spontaneous
  Country: IE (occurrence: IE)
  Receive Date: 20220218
  Receipt Date: 20221214
  Transmission Date: 20230112
  Serious: Yes (Hospitalization, Other)
  Sender: FDA-Public Use
  Company Number: IE-PFIZER INC-202200224782

PATIENT
  Age: 29 Year
  Sex: Female

DRUGS (4)
  1. PREGABALIN [Suspect]
     Active Substance: PREGABALIN
     Indication: Anxiety
     Dosage: 1200 MG, DAILY
     Route: 065
  2. PREGABALIN [Suspect]
     Active Substance: PREGABALIN
     Dosage: 1400 MG, DAILY
     Route: 065
  3. DIAZEPAM [Concomitant]
     Active Substance: DIAZEPAM
     Indication: Product used for unknown indication
     Dosage: 5 MG, QD,1X/DAY
     Route: 065
  4. DIAZEPAM [Concomitant]
     Active Substance: DIAZEPAM
     Indication: Anxiety

REACTIONS (9)
  - Intentional overdose [Unknown]
  - Drug abuse [Unknown]
  - Toxicity to various agents [Unknown]
  - Maternal exposure during pregnancy [Unknown]
  - Drug withdrawal syndrome [Unknown]
  - Exposure via breast milk [Unknown]
  - Anxiety [Recovered/Resolved]
  - Irritability [Recovered/Resolved]
  - Sleep disorder [Recovered/Resolved]
